FAERS Safety Report 6530759-9 (Version None)
Quarter: 2010Q1

REPORT INFORMATION
  Report Type: 
  Country: None (occurrence: None)
  Receive Date: 20100108
  Receipt Date: 20090127
  Transmission Date: 20100710
  Serious: No
  Sender: FDA-Public Use
  Company Number: A0765470A

PATIENT
  Age: 47 Year
  Sex: Male

DRUGS (2)
  1. LOVAZA [Suspect]
     Route: 048
     Dates: start: 20080501, end: 20081201
  2. STATINS [Concomitant]

REACTIONS (1)
  - LOW DENSITY LIPOPROTEIN INCREASED [None]
